FAERS Safety Report 15710755 (Version 1)
Quarter: 2018Q4

REPORT INFORMATION
  Report Type: Report from Study
  Country: ZA (occurrence: ZA)
  Receive Date: 20181211
  Receipt Date: 20181211
  Transmission Date: 20190205
  Serious: Yes (Life-Threatening)
  Sender: FDA-Public Use
  Company Number: ZA-SAKK-2018SA331394AA

PATIENT
  Age: 58 Year
  Sex: Female

DRUGS (3)
  1. INSULIN GLULISINE [Suspect]
     Active Substance: INSULIN GLULISINE
     Indication: TYPE 2 DIABETES MELLITUS
  2. NOVORAPID [Concomitant]
     Active Substance: INSULIN ASPART
     Dosage: 30 IU BEFORE SUPPER, BEFORE LUNCH, BEFORE BREAKFAST
     Dates: start: 20181122
  3. TOUJEO [Suspect]
     Active Substance: INSULIN GLARGINE
     Indication: TYPE 2 DIABETES MELLITUS
     Dosage: 40 U, HS
     Dates: start: 20181122

REACTIONS (3)
  - Malaise [Not Recovered/Not Resolved]
  - Influenza [Not Recovered/Not Resolved]
  - Blood glucose increased [Not Recovered/Not Resolved]

NARRATIVE: CASE EVENT DATE: 20181129
